FAERS Safety Report 4406631-7 (Version None)
Quarter: 2004Q3

REPORT INFORMATION
  Report Type: 
  Country: None (occurrence: None)
  Receive Date: 20040723
  Receipt Date: 20040420
  Transmission Date: 20050211
  Serious: Yes (Life-Threatening, Hospitalization)
  Sender: FDA-Public Use
  Company Number: PHRM2004FR01593

PATIENT
  Age: 17 Year
  Sex: Female
  Weight: 56 kg

DRUGS (3)
  1. VOLTARENE LP [Suspect]
     Indication: NECK PAIN
     Dosage: 100 MG, ONCE/SINGLE
     Route: 048
     Dates: start: 20040408, end: 20040408
  2. BI-PROFENID [Suspect]
     Indication: ABDOMINAL PAIN
     Dosage: 150 MG, ONCE/SINGLE
     Route: 048
     Dates: start: 20040412, end: 20040412
  3. MYOLASTAN [Concomitant]
     Indication: NECK PAIN
     Dosage: 25 MG, ONCE/SINGLE
     Route: 048
     Dates: start: 20040408, end: 20040408

REACTIONS (13)
  - ABDOMINAL PAIN UPPER [None]
  - ANAEMIA [None]
  - ANOREXIA [None]
  - BLOOD CREATININE INCREASED [None]
  - HAEMATURIA [None]
  - HAEMOGLOBIN DECREASED [None]
  - RED BLOOD CELL COUNT DECREASED [None]
  - RENAL COLIC [None]
  - RENAL DISORDER [None]
  - RENAL FAILURE ACUTE [None]
  - RENAL SCAN ABNORMAL [None]
  - RENAL TUBULAR DISORDER [None]
  - VOMITING [None]
